FAERS Safety Report 6347543-1 (Version None)
Quarter: 2009Q3

REPORT INFORMATION
  Report Type: 
  Country: None (occurrence: None)
  Receive Date: 20090908
  Receipt Date: 20090908
  Transmission Date: 20100115
  Serious: Yes (Hospitalization, Disabling)
  Sender: FDA-Public Use
  Company Number: None

PATIENT
  Age: 58 Year
  Sex: Female

DRUGS (4)
  1. AMLODIPINE BESYLATE AND BENAZEPRIL HCL [Suspect]
     Indication: HYPERTENSION
     Dosage: DAILY PO
     Route: 048
  2. OLMESARTAN UNKNOWN [Suspect]
     Indication: HYPERTENSION
     Dosage: DAILY PO
     Route: 048
  3. CYCLOBENZAPRINE [Concomitant]
  4. NAPROXEN [Concomitant]

REACTIONS (4)
  - ANGIOEDEMA [None]
  - DYSPHAGIA [None]
  - RESPIRATORY DISTRESS [None]
  - SPEECH DISORDER [None]
